FAERS Safety Report 20919039 (Version 1)
Quarter: 2022Q2

REPORT INFORMATION
  Report Type: Spontaneous
  Country: US (occurrence: US)
  Receive Date: 20220606
  Receipt Date: 20220606
  Transmission Date: 20220721
  Serious: No
  Sender: FDA-Public Use
  Company Number: US-PFIZER INC-202200787384

PATIENT
  Age: 72 Year
  Sex: Female
  Weight: 48.53 kg

DRUGS (1)
  1. TOVIAZ [Suspect]
     Active Substance: FESOTERODINE FUMARATE
     Indication: Incontinence
     Dosage: 8 MG, 1X/DAY
     Route: 048
     Dates: start: 20220516, end: 20220530

REACTIONS (7)
  - Drug ineffective [Unknown]
  - Abdominal distension [Unknown]
  - Swelling face [Not Recovered/Not Resolved]
  - Back pain [Unknown]
  - Visual impairment [Not Recovered/Not Resolved]
  - Pain in extremity [Unknown]
  - Peripheral swelling [Not Recovered/Not Resolved]
